FAERS Safety Report 7449794-1 (Version None)
Quarter: 2011Q2

REPORT INFORMATION
  Report Type: 
  Country: None (occurrence: None)
  Receive Date: 20110421
  Receipt Date: 20110411
  Transmission Date: 20111010
  Serious: Yes (Other)
  Sender: FDA-Public Use
  Company Number: 888384

PATIENT
  Age: 49 Year
  Sex: Male
  Weight: 88.45 kg

DRUGS (6)
  1. METOPROLOL TARTRATE INJECTION, USP, 1 MG/ML, 5 ML VIALS (METOPROLOL) [Concomitant]
  2. CALCIUM FOLINATE 10MG/ML INJECTION (CALCIUM FOLINATE) [Suspect]
     Indication: PRODUCT USED FOR UNKNOWN INDICATION
     Dosage: INTRAVENOUS
     Route: 042
     Dates: start: 20100713, end: 20100713
  3. (MAXLLDE) [Concomitant]
  4. ELOXATIN [Suspect]
     Indication: RECTAL CANCER
     Dosage: 175 MG, EVERY 2 WEEKS, INTRAVENOUS DRIP
     Route: 041
     Dates: start: 20100713, end: 20100713
  5. (BENAURYL /00000402/) [Concomitant]
  6. DECADRON [Concomitant]

REACTIONS (7)
  - DEPRESSED LEVEL OF CONSCIOUSNESS [None]
  - COLD SWEAT [None]
  - SYNCOPE [None]
  - NAUSEA [None]
  - BLOOD PRESSURE DECREASED [None]
  - HYPERSENSITIVITY [None]
  - BRONCHOSPASM [None]
